FAERS Safety Report 23703813 (Version 1)
Quarter: 2024Q2

REPORT INFORMATION
  Report Type: Spontaneous
  Country: US (occurrence: US)
  Receive Date: 20240403
  Receipt Date: 20240403
  Transmission Date: 20240716
  Serious: Yes (Other)
  Sender: FDA-Public Use
  Company Number: US-BAUSCHBL-2024BNL003896

PATIENT
  Age: 29 Year
  Sex: Female

DRUGS (3)
  1. PROPARACAINE [Suspect]
     Active Substance: PROPARACAINE
     Indication: Corneal abrasion
     Dosage: 15-ML BOTTLE, COMPLETED THE BOTTLE WITHIN 24 HR
     Route: 061
  2. CIPROFLOXACIN [Concomitant]
     Active Substance: CIPROFLOXACIN
     Indication: Corneal abrasion
     Route: 061
  3. ERYTHROMYCIN [Concomitant]
     Active Substance: ERYTHROMYCIN
     Indication: Corneal abrasion
     Dosage: ERYTHROMYCIN OINTMENT 4 TIMES A DAY OU
     Route: 061

REACTIONS (2)
  - Drug abuse [Unknown]
  - Keratopathy [Recovered/Resolved]
